FAERS Safety Report 8238053-5 (Version None)
Quarter: 2012Q1

REPORT INFORMATION
  Report Type: 
  Country: None (occurrence: None)
  Receive Date: 20120327
  Receipt Date: 20120320
  Transmission Date: 20120608
  Serious: Yes (Other)
  Sender: FDA-Public Use
  Company Number: US-GLAXOSMITHKLINE-A0966997A

PATIENT
  Age: 48 Year
  Sex: Female

DRUGS (1)
  1. VENTOLIN [Suspect]
     Indication: PRODUCT USED FOR UNKNOWN INDICATION
     Dosage: 2PUFF SINGLE DOSE
     Route: 055

REACTIONS (6)
  - PRURITUS GENERALISED [None]
  - URTICARIA [None]
  - SCRATCH [None]
  - DYSPHONIA [None]
  - WOUND HAEMORRHAGE [None]
  - SLEEP DISORDER [None]
